FAERS Safety Report 21299997 (Version 1)
Quarter: 2022Q3

REPORT INFORMATION
  Report Type: Spontaneous
  Country: CA (occurrence: CA)
  Receive Date: 20220906
  Receipt Date: 20220906
  Transmission Date: 20221026
  Serious: Yes (Hospitalization, Other)
  Sender: FDA-Public Use
  Company Number: CA-PFIZER INC-202200548084

PATIENT
  Age: 44 Year
  Sex: Female

DRUGS (2)
  1. SULFASALAZINE [Suspect]
     Active Substance: SULFASALAZINE
     Dosage: 1 DF(UNKNOWN DOSE AND END DATE )
  2. SULFASALAZINE [Suspect]
     Active Substance: SULFASALAZINE
     Dosage: RESTARTED
     Dates: start: 2022

REACTIONS (6)
  - Haematochezia [Unknown]
  - Frequent bowel movements [Unknown]
  - Treatment failure [Unknown]
  - Therapeutic product effect incomplete [Unknown]
  - Illness [Unknown]
  - Fistula [Unknown]

NARRATIVE: CASE EVENT DATE: 20210101
